FAERS Safety Report 9689857 (Version 2)
Quarter: 2013Q4

REPORT INFORMATION
  Report Type: Spontaneous
  Country: DE (occurrence: DE)
  Receive Date: 20131115
  Receipt Date: 20131115
  Transmission Date: 20140711
  Serious: Yes (Hospitalization, Other)
  Sender: FDA-Public Use
  Company Number: DE-AMGEN-DEUSP2013062871

PATIENT
  Age: 82 Year
  Sex: Male
  Weight: 80 kg

DRUGS (10)
  1. XGEVA [Suspect]
     Indication: METASTASES TO BONE
     Dosage: UNK UNK, QMO
     Route: 058
     Dates: start: 20130526, end: 20130813
  2. BICALUTIN [Concomitant]
     Indication: PROSTATE CANCER
     Dosage: UNK UNK, QD
     Route: 048
     Dates: start: 20130626, end: 20130926
  3. BISPROLOL COMP [Concomitant]
     Dosage: UNK UNK, QD
  4. AMLODIPIN                          /00972401/ [Concomitant]
     Dosage: UNK UNK, QD
  5. LORAZEPAN [Concomitant]
     Dosage: UNK UNK, TID
  6. CANDESARTAN [Concomitant]
     Dosage: UNK UNK, QD
  7. IRON                               /00023503/ [Concomitant]
     Dosage: UNK UNK, QD
  8. LYRICA [Concomitant]
     Dosage: 75 UNK, BID
  9. CALCIUM [Concomitant]
     Dosage: UNK UNK, TID
  10. OXAZEPAM [Concomitant]
     Dosage: UNK UNK, QD

REACTIONS (3)
  - Gamma-glutamyltransferase increased [Recovering/Resolving]
  - Prostatic specific antigen increased [Recovering/Resolving]
  - Cancer pain [Recovering/Resolving]
